FAERS Safety Report 17947573 (Version 1)
Quarter: 2020Q2

REPORT INFORMATION
  Report Type: Spontaneous
  Country: FR (occurrence: FR)
  Receive Date: 20200626
  Receipt Date: 20200626
  Transmission Date: 20200714
  Serious: Yes (Hospitalization)
  Sender: FDA-Public Use
  Company Number: FR-ORION CORPORATION ORION PHARMA-20_00009528

PATIENT
  Age: 49 Year
  Sex: Female
  Weight: 83 kg

DRUGS (4)
  1. IMETH [Suspect]
     Active Substance: METHOTREXATE SODIUM
     Indication: ANKYLOSING SPONDYLITIS
     Route: 048
     Dates: start: 20180525, end: 201907
  2. COSENTYX [Suspect]
     Active Substance: SECUKINUMAB
     Indication: ANKYLOSING SPONDYLITIS
     Dosage: STRENGTH: 150 MG
     Route: 058
     Dates: start: 20180525, end: 201907
  3. PARACETAMOL [Concomitant]
     Active Substance: ACETAMINOPHEN
     Route: 065
  4. SPECIAFOLDINE [Concomitant]
     Active Substance: FOLIC ACID
     Dosage: STRENGTH: 5 MG
     Route: 065

REACTIONS (5)
  - Lymphadenitis [Recovered/Resolved]
  - Pyrexia [Recovered/Resolved]
  - Headache [Recovered/Resolved]
  - Infection reactivation [Not Recovered/Not Resolved]
  - Toxoplasma serology positive [Not Recovered/Not Resolved]

NARRATIVE: CASE EVENT DATE: 20190619
